FAERS Safety Report 6670865-1 (Version None)
Quarter: 2010Q2

REPORT INFORMATION
  Report Type: 
  Country: None (occurrence: None)
  Receive Date: 20100407
  Receipt Date: 20100331
  Transmission Date: 20101027
  Serious: Yes (Hospitalization, Other)
  Sender: FDA-Public Use
  Company Number: FR-BRISTOL-MYERS SQUIBB COMPANY-15046899

PATIENT
  Age: 74 Year
  Sex: Male

DRUGS (9)
  1. ORENCIA [Suspect]
     Indication: RHEUMATOID ARTHRITIS
     Route: 042
     Dates: start: 20080801, end: 20100112
  2. CORTANCYL [Suspect]
     Indication: RHEUMATOID ARTHRITIS
     Route: 048
  3. OXYCONTIN [Concomitant]
     Dosage: OXYCONTIN LP TABLET
  4. HUMALOG [Concomitant]
  5. CRESTOR [Concomitant]
     Dosage: FORMULATION: TABS
  6. FORLAX [Concomitant]
     Dosage: MACROGOL 4000
  7. HYZAAR [Concomitant]
     Dosage: 1 DF = 50MG/12.5MG TABLET (LOSARTAN/HCTZ)
  8. NEXIUM [Concomitant]
     Dosage: FORMULATION : TABS
  9. LASILIX RETARD [Concomitant]
     Dosage: FORMULTAION: CAPS

REACTIONS (2)
  - CRYPTOCOCCOSIS [None]
  - INJURY [None]
